FAERS Safety Report 4910007-3 (Version None)
Quarter: 2006Q1

REPORT INFORMATION
  Report Type: 
  Country: None (occurrence: None)
  Receive Date: 20060208
  Receipt Date: 20060127
  Transmission Date: 20060701
  Serious: Yes (Hospitalization)
  Sender: FDA-Public Use
  Company Number: 2006JP00093

PATIENT
  Age: 77 Year
  Sex: Female

DRUGS (4)
  1. PROGRAF [Suspect]
     Dosage: 1 MG,BID, ORAL
     Route: 048
     Dates: start: 20040402, end: 20040527
  2. NEO DOPASTON (CARBIDOPA) [Concomitant]
  3. SELEGILINE HYDROCHLORIDE [Concomitant]
  4. PERMAX [Concomitant]

REACTIONS (5)
  - DEPRESSED LEVEL OF CONSCIOUSNESS [None]
  - HALLUCINATION, VISUAL [None]
  - PERSECUTORY DELUSION [None]
  - PSYCHOMOTOR HYPERACTIVITY [None]
  - TOXIC INDUCED ENCEPHALOPATHY [None]
